FAERS Safety Report 10703151 (Version 1)
Quarter: 2015Q1

REPORT INFORMATION
  Report Type: Spontaneous
  Country: BR (occurrence: BR)
  Receive Date: 20150112
  Receipt Date: 20150112
  Transmission Date: 20150721
  Serious: Yes (Other)
  Sender: FDA-Public Use
  Company Number: BR-ROCHE-1518834

PATIENT
  Sex: Female

DRUGS (1)
  1. RIVOTRIL [Suspect]
     Active Substance: CLONAZEPAM
     Indication: PRODUCT USED FOR UNKNOWN INDICATION
     Route: 065

REACTIONS (13)
  - Stupor [Unknown]
  - Loss of consciousness [Recovered/Resolved]
  - Confusional state [Unknown]
  - Intentional overdose [Unknown]
  - Hallucination [Unknown]
  - Depression [Not Recovered/Not Resolved]
  - Somnolence [Unknown]
  - Anxiety [Not Recovered/Not Resolved]
  - Apathy [Unknown]
  - Wrong technique in drug usage process [Unknown]
  - Speech disorder [Unknown]
  - Anger [Not Recovered/Not Resolved]
  - Pain [Not Recovered/Not Resolved]
